FAERS Safety Report 5840646-7 (Version None)
Quarter: 2008Q3

REPORT INFORMATION
  Report Type: 
  Country: None (occurrence: None)
  Receive Date: 20080811
  Receipt Date: 20080730
  Transmission Date: 20090109
  Serious: Yes (Other)
  Sender: FDA-Public Use
  Company Number: PHHY2008JP16418

PATIENT
  Age: 29 Year
  Sex: Male

DRUGS (5)
  1. NEORAL [Suspect]
  2. METHYLPREDNISOLONE [Concomitant]
  3. LAMIVUDINE [Concomitant]
     Indication: HEPATITIS B
  4. INTERFERON BETA [Concomitant]
     Indication: HEPATITIS B
  5. SULFAMETHOXAZOLE AND TRIMETHOPRIM [Suspect]
     Indication: PNEUMOCYSTIS JIROVECI PNEUMONIA

REACTIONS (3)
  - ENCEPHALOPATHY [None]
  - LIVER DISORDER [None]
  - PNEUMOCYSTIS JIROVECI PNEUMONIA [None]
